FAERS Safety Report 8460319-4 (Version None)
Quarter: 2012Q2

REPORT INFORMATION
  Report Type: 
  Country: None (occurrence: None)
  Receive Date: 20120622
  Receipt Date: 20120614
  Transmission Date: 20120825
  Serious: Yes (Other)
  Sender: FDA-Public Use
  Company Number: JP-JHP PHARMACEUTICALS, LLC-JHP201200231

PATIENT
  Age: 79 Year
  Sex: Male
  Weight: 55 kg

DRUGS (17)
  1. DOBUTAMINE HCL [Concomitant]
     Dosage: 10 ?G/KG, MIN
     Route: 042
  2. ATROPINE [Concomitant]
     Dosage: 1 MG, UNK
  3. NOREPINEPHRINE BITARTRATE [Concomitant]
     Dosage: 0.2 ?G/KG, MIN
  4. EPINEPHRINE [Suspect]
     Indication: OFF LABEL USE
     Dosage: 0.2 ?G/KG, MIN STARTING AT 36 MINUTES AFTER THE INCISION
     Route: 042
  5. PITRESSIN [Suspect]
     Indication: OFF LABEL USE
  6. SEVOFLURANE [Concomitant]
     Indication: GENERAL ANAESTHESIA
     Dosage: 1%
     Route: 055
  7. EPINEPHRINE [Suspect]
     Indication: HYPOTENSION
     Dosage: 0.2 MG, UNK
  8. DOPAMINE HCL [Concomitant]
     Dosage: 10 ?G/KG, MIN
     Route: 042
  9. EPHEDRINE [Concomitant]
     Dosage: 12 MG, UNK
  10. ULINASTATIN [Concomitant]
     Dosage: 200,000 UNITS, UNK
  11. NOREPINEPHRINE BITARTRATE [Concomitant]
     Dosage: 0.15 ?G/KG, MIN
  12. PHENYLEPHRINE HCL [Concomitant]
     Dosage: 0.3 MG, UNK
  13. SEVOFLURANE [Concomitant]
     Dosage: 0.5% FOR MAINTENANCE
  14. NOREPINEPHRINE BITARTRATE [Concomitant]
     Dosage: 0.06 ?G/KG, MIN
     Route: 042
  15. ROCURONIUM BROMIDE [Concomitant]
     Indication: GENERAL ANAESTHESIA
     Dosage: 50 MG, UNK
  16. PITRESSIN [Suspect]
     Indication: HYPOTENSION
     Dosage: 2 UNITS/ HR STARTING AT 66 MINUTES AFTER THE INCISION
     Route: 042
  17. ROCURONIUM BROMIDE [Concomitant]
     Dosage: 40 MG, UNK

REACTIONS (1)
  - DRUG INEFFECTIVE FOR UNAPPROVED INDICATION [None]
